FAERS Safety Report 6810550-6 (Version None)
Quarter: 2010Q2

REPORT INFORMATION
  Report Type: 
  Country: None (occurrence: None)
  Receive Date: 20100630
  Receipt Date: 20100617
  Transmission Date: 20101027
  Serious: Yes (Hospitalization)
  Sender: FDA-Public Use
  Company Number: ES-GENENTECH-281198

PATIENT
  Sex: Female

DRUGS (7)
  1. RITUXIMAB [Suspect]
     Indication: LYMPHOCYTIC LEUKAEMIA
     Dosage: 600 MG, Q28D
     Route: 042
     Dates: start: 20090224
  2. CYCLOPHOSPHAMIDE [Suspect]
     Indication: LYMPHOCYTIC LEUKAEMIA
     Dosage: 400 MG, Q28D
     Route: 042
     Dates: start: 20090224
  3. FLUDARABINE [Suspect]
     Indication: LYMPHOCYTIC LEUKAEMIA
     Dosage: 40 MG, Q28D
     Route: 042
     Dates: start: 20090224
  4. SEPTRIN [Concomitant]
     Indication: DRUG USE FOR UNKNOWN INDICATION
     Dosage: UNK
     Dates: start: 20090223
  5. VALTREX [Concomitant]
     Indication: DRUG USE FOR UNKNOWN INDICATION
     Dosage: 1 G, Q12H
     Dates: start: 20090223
  6. AMILORIDE HCL AND HYDROCHLOROTHIAZIDE [Concomitant]
     Indication: DRUG USE FOR UNKNOWN INDICATION
     Dosage: 610 UNK, UNK
     Dates: start: 20001101
  7. EPREX [Concomitant]
     Indication: DRUG USE FOR UNKNOWN INDICATION
     Dosage: 4000 U, UNK
     Dates: start: 20090324

REACTIONS (1)
  - FEBRILE NEUTROPENIA [None]
